FAERS Safety Report 18997567 (Version 1)
Quarter: 2021Q1

REPORT INFORMATION
  Report Type: Spontaneous
  Country: FR (occurrence: FR)
  Receive Date: 20210311
  Receipt Date: 20210311
  Transmission Date: 20210420
  Serious: Yes (Life-Threatening, Hospitalization)
  Sender: FDA-Public Use
  Company Number: FR-ACCORD-219257

PATIENT
  Age: 77 Year
  Sex: Male
  Weight: 72.3 kg

DRUGS (5)
  1. MELATONIN [Suspect]
     Active Substance: MELATONIN
     Route: 048
     Dates: start: 20210125, end: 20210125
  2. TERALITHE [Suspect]
     Active Substance: LITHIUM CARBONATE
     Dosage: 400 MG, PROLONGED?RELEASE SCORED TABLET
     Route: 048
     Dates: start: 20210125, end: 20210125
  3. LAMICTAL [Suspect]
     Active Substance: LAMOTRIGINE
     Dosage: 100 MG, TABLET
     Route: 048
     Dates: start: 20210125, end: 20210125
  4. ALPRAZOLAM. [Suspect]
     Active Substance: ALPRAZOLAM
     Route: 048
     Dates: start: 20210125, end: 20210125
  5. FLUOXETINE [Suspect]
     Active Substance: FLUOXETINE HYDROCHLORIDE
     Route: 048
     Dates: start: 20210125, end: 20210125

REACTIONS (4)
  - Poisoning deliberate [Unknown]
  - Arrhythmia supraventricular [Recovering/Resolving]
  - Coma [Recovered/Resolved]
  - Antipsychotic drug level increased [Recovered/Resolved]

NARRATIVE: CASE EVENT DATE: 20210125
